FAERS Safety Report 10465640 (Version 13)
Quarter: 2014Q4

REPORT INFORMATION
  Report Type: Spontaneous
  Country: CN (occurrence: CN)
  Receive Date: 20140919
  Receipt Date: 20141231
  Transmission Date: 20150528
  Serious: Yes (Death, Other)
  Sender: FDA-Public Use
  Company Number: CN-009507513-1409CHN009122

PATIENT
  Age: 54 Year
  Sex: Male
  Weight: 62 kg

DRUGS (14)
  1. TROPISETRON HYDROCHLORIDE [Concomitant]
     Active Substance: TROPISETRON HYDROCHLORIDE
     Indication: PROPHYLAXIS OF NAUSEA AND VOMITING
     Dosage: 100ML/CC, QD
     Route: 041
     Dates: start: 20140910, end: 20140911
  2. METOCLOPRAMIDE HYDROCHLORIDE. [Concomitant]
     Active Substance: METOCLOPRAMIDE HYDROCHLORIDE
     Indication: PROPHYLAXIS OF NAUSEA AND VOMITING
     Dosage: 10 MG, QD
     Route: 041
     Dates: start: 20140910, end: 20140912
  3. CAPECITABINE. [Concomitant]
     Active Substance: CAPECITABINE
     Indication: CHEMOTHERAPY
     Dosage: 1500 MG, D1-D14, TREATMENT CYCLE 1/UNK
     Route: 048
     Dates: start: 20140910, end: 20140912
  4. LOBELINE HYDROCHLORIDE [Concomitant]
     Indication: SHOCK
     Dosage: 3 MG, BID
     Route: 042
     Dates: start: 20140913, end: 20140913
  5. EMEND [Suspect]
     Active Substance: APREPITANT
     Indication: PROPHYLAXIS OF NAUSEA AND VOMITING
     Dosage: 125 MG, ONCE, DAY 1
     Route: 048
     Dates: start: 20140910, end: 20140910
  6. NIKETHAMIDE [Concomitant]
     Active Substance: NIKETHAMIDE
     Indication: SHOCK
     Dosage: 1.5 ML, BID
     Route: 042
     Dates: start: 20140913, end: 20140913
  7. EMEND [Suspect]
     Active Substance: APREPITANT
     Dosage: 80 MG, ONCE,DAY 2 AND 3
     Route: 048
     Dates: start: 20140911, end: 20140912
  8. CISPLATIN. [Concomitant]
     Active Substance: CISPLATIN
     Indication: CHEMOTHERAPY
     Dosage: 30 MG, FROM D1 TO D4, TREATMENT CYCLE 1/UNK, XP CHEMOTHERAPY
     Route: 041
     Dates: start: 20140910, end: 20140912
  9. LANSOPRAZOLE. [Concomitant]
     Active Substance: LANSOPRAZOLE
     Indication: DUODENAL ULCER
     Dosage: 30 MG, QD
     Route: 041
     Dates: start: 20140910, end: 20140912
  10. DEXAMETHASONE SODIUM PHOSPHATE. [Concomitant]
     Active Substance: DEXAMETHASONE SODIUM PHOSPHATE
     Indication: PROPHYLAXIS OF NAUSEA AND VOMITING
     Dosage: 5 MG, QD
     Route: 041
     Dates: start: 20140910, end: 20140912
  11. EPINEPHRINE HYDROCHLORIDE. [Concomitant]
     Active Substance: EPINEPHRINE HYDROCHLORIDE
     Indication: SHOCK
     Dosage: 1 MG, SEVEN TIMES
     Route: 042
     Dates: start: 20140913, end: 20140913
  12. SODIUM CHLORIDE. [Concomitant]
     Active Substance: SODIUM CHLORIDE
     Indication: FLUID REPLACEMENT
     Dosage: 500 ML/CC, QD
     Route: 041
     Dates: start: 20140911, end: 20140912
  13. TYRAMINE [Concomitant]
     Active Substance: TYRAMINE
     Indication: SHOCK
     Dosage: TOTAL DAILY DOSE: 100 MG, ONCE
     Route: 041
     Dates: start: 20140913, end: 20140913
  14. VITAMINS (UNSPECIFIED) [Concomitant]
     Active Substance: VITAMINS
     Indication: NUTRITIONAL SUPPLEMENTATION
     Dosage: ROUTE IVGTT
     Route: 041
     Dates: start: 20140909

REACTIONS (3)
  - Upper gastrointestinal haemorrhage [Fatal]
  - Decreased appetite [Unknown]
  - Loss of consciousness [Fatal]

NARRATIVE: CASE EVENT DATE: 20140912
